FAERS Safety Report 4791889-5 (Version None)
Quarter: 2005Q4

REPORT INFORMATION
  Report Type: 
  Country: None (occurrence: None)
  Receive Date: 20051007
  Receipt Date: 20050614
  Transmission Date: 20060501
  Serious: Yes (Death, Hospitalization)
  Sender: FDA-Public Use
  Company Number: PHBS2005JP08629

PATIENT
  Age: 71 Year
  Sex: Female

DRUGS (5)
  1. DIOVAN [Suspect]
     Indication: HYPERTENSION
     Dosage: 160 MG, QD
     Route: 048
     Dates: start: 20050512, end: 20050608
  2. BUFFERIN [Concomitant]
     Indication: CEREBRAL INFARCTION
     Dosage: 81 MG/DAY
     Route: 048
     Dates: start: 19980811
  3. THYRADIN [Concomitant]
     Indication: AUTOIMMUNE THYROIDITIS
     Dosage: 75 MG/DAY
     Route: 048
     Dates: start: 19830401
  4. DEPAS [Concomitant]
     Indication: HYPERTENSION
     Dosage: 1 MG/DAY
     Route: 048
     Dates: start: 20050120
  5. HALCION [Concomitant]
     Indication: INSOMNIA
     Dosage: 0.5 MG/DAY
     Route: 048
     Dates: start: 20041229

REACTIONS (9)
  - CIRCULATORY COLLAPSE [None]
  - CONVULSION [None]
  - DEATH [None]
  - FALL [None]
  - HEMIPLEGIA [None]
  - LOSS OF CONSCIOUSNESS [None]
  - PULMONARY OEDEMA [None]
  - RESPIRATORY FAILURE [None]
  - STATUS EPILEPTICUS [None]
